FAERS Safety Report 14763904 (Version 4)
Quarter: 2018Q2

REPORT INFORMATION
  Report Type: Report from Study
  Country: US (occurrence: US)
  Receive Date: 20180416
  Receipt Date: 20180601
  Transmission Date: 20180711
  Serious: Yes (Hospitalization)
  Sender: FDA-Public Use
  Company Number: US-JNJFOC-20180416292

PATIENT
  Age: 81 Year
  Sex: Female

DRUGS (9)
  1. FLORASTOR [Concomitant]
     Active Substance: SACCHAROMYCES CEREVISIAE
  2. FERROUS GLUCONATE [Concomitant]
     Active Substance: FERROUS GLUCONATE
  3. BENZONATATE. [Concomitant]
     Active Substance: BENZONATATE
  4. ESTRACE [Concomitant]
     Active Substance: ESTRADIOL
     Route: 065
  5. RESTASIS [Concomitant]
     Active Substance: CYCLOSPORINE
  6. GABAPENTIN. [Concomitant]
     Active Substance: GABAPENTIN
  7. FAMOTIDINE. [Concomitant]
     Active Substance: FAMOTIDINE
  8. IMBRUVICA [Suspect]
     Active Substance: IBRUTINIB
     Indication: B-CELL SMALL LYMPHOCYTIC LYMPHOMA
     Route: 048
     Dates: start: 20180316, end: 20180409
  9. IMBRUVICA [Suspect]
     Active Substance: IBRUTINIB
     Indication: CHRONIC LYMPHOCYTIC LEUKAEMIA
     Route: 048
     Dates: start: 20180316, end: 20180409

REACTIONS (7)
  - Fatigue [Recovered/Resolved]
  - Leukopenia [Recovering/Resolving]
  - Somnolence [Unknown]
  - Transient ischaemic attack [Unknown]
  - Rash macular [Not Recovered/Not Resolved]
  - Anaemia [Recovering/Resolving]
  - Haemorrhagic diathesis [Recovering/Resolving]

NARRATIVE: CASE EVENT DATE: 20180323
